FAERS Safety Report 21519226 (Version 1)
Quarter: 2022Q4

REPORT INFORMATION
  Report Type: Spontaneous
  Country: PL (occurrence: PL)
  Receive Date: 20221028
  Receipt Date: 20221028
  Transmission Date: 20230113
  Serious: Yes (Life-Threatening)
  Sender: FDA-Public Use
  Company Number: None

PATIENT
  Age: 48 Year
  Weight: 81 kg

DRUGS (1)
  1. IRON ISOMALTOSIDE 1000 [Suspect]
     Active Substance: IRON ISOMALTOSIDE 1000
     Indication: Disseminated intravascular coagulation
     Dosage: 1 AD HOC
     Route: 050
     Dates: start: 20211222, end: 20211222

REACTIONS (7)
  - Hypersensitivity [Recovered/Resolved]
  - Malaise [Recovered/Resolved]
  - Asthenia [Recovered/Resolved]
  - Head injury [Recovered/Resolved]
  - Abdominal pain [Recovered/Resolved]
  - Hypotension [Recovered/Resolved]
  - Syncope [Recovered/Resolved]

NARRATIVE: CASE EVENT DATE: 20211222
